FAERS Safety Report 26186228 (Version 1)
Quarter: 2025Q4

REPORT INFORMATION
  Report Type: Spontaneous
  Country: US (occurrence: US)
  Receive Date: 20251222
  Receipt Date: 20251222
  Transmission Date: 20260118
  Serious: Yes (Other)
  Sender: NEXUS PHARMACEUTICALS
  Company Number: US-Nexus Pharma-000546

PATIENT
  Age: 69 Year
  Sex: Male

DRUGS (1)
  1. METHYLENE BLUE [Suspect]
     Active Substance: METHYLENE BLUE
     Indication: Product used for unknown indication

REACTIONS (2)
  - Retinal toxicity [Unknown]
  - Accidental exposure to product [Unknown]
